FAERS Safety Report 24984787 (Version 1)
Quarter: 2025Q1

REPORT INFORMATION
  Report Type: Spontaneous
  Country: CA (occurrence: CA)
  Receive Date: 20250219
  Receipt Date: 20250219
  Transmission Date: 20250408
  Serious: Yes (Life-Threatening, Other)
  Sender: BRISTOL-MYERS SQUIBB COMPANY
  Company Number: CA-BRISTOL-MYERS SQUIBB COMPANY-2025-023878

PATIENT
  Age: 82 Year
  Sex: Male
  Weight: 83 kg

DRUGS (10)
  1. OPDIVO [Suspect]
     Active Substance: NIVOLUMAB
     Indication: Metastatic malignant melanoma
     Dosage: OPDIVO 40MG/4ML (SINGLE-USE VIAL)
     Route: 042
  2. ALFUZOSIN [Concomitant]
     Active Substance: ALFUZOSIN
  3. ASPIRIN [Concomitant]
     Active Substance: ASPIRIN
  4. FINASTERIDE [Concomitant]
     Active Substance: FINASTERIDE
  5. LATANOPROST [Concomitant]
     Active Substance: LATANOPROST
     Route: 047
  6. PANTOPRAZOLE [Concomitant]
     Active Substance: PANTOPRAZOLE
     Route: 042
  7. SENNOSIDES [Concomitant]
     Active Substance: SENNOSIDES
  8. SILDENAFIL [Concomitant]
     Active Substance: SILDENAFIL
  9. TRANDOLAPRIL [Concomitant]
     Active Substance: TRANDOLAPRIL
  10. TROSPIUM CHLORIDE [Concomitant]
     Active Substance: TROSPIUM CHLORIDE

REACTIONS (6)
  - Atrioventricular block complete [Recovering/Resolving]
  - Hepatitis [Recovering/Resolving]
  - Myocarditis [Recovering/Resolving]
  - Myositis [Recovering/Resolving]
  - Thyroiditis [Recovering/Resolving]
  - Adverse event [Unknown]
